FAERS Safety Report 10216784 (Version 1)
Quarter: 2014Q2

REPORT INFORMATION
  Report Type: Spontaneous
  Country: IE (occurrence: IE)
  Receive Date: 20140604
  Receipt Date: 20140604
  Transmission Date: 20141212
  Serious: Yes (Death)
  Sender: FDA-Public Use
  Company Number: IE-AMGEN-IRLSP2014040113

PATIENT
  Age: 78 Year
  Sex: Male

DRUGS (13)
  1. ARANESP [Suspect]
     Indication: RENAL FAILURE CHRONIC
     Dosage: 10 MUG, Q2WK
     Route: 058
     Dates: start: 20110829
  2. PROTHIADEN [Concomitant]
  3. FRUSEMIDE                          /00032601/ [Concomitant]
  4. PANTOPRAZOLE [Concomitant]
  5. OMESAR [Concomitant]
  6. CRESTOR [Concomitant]
  7. LIPITOR [Concomitant]
  8. ASPIRIN [Concomitant]
  9. GLYTRIN [Concomitant]
  10. MOVICOL                            /01625101/ [Concomitant]
  11. NORTEM [Concomitant]
  12. PROTIUM                            /01263204/ [Concomitant]
  13. TRAMADOL [Concomitant]

REACTIONS (1)
  - Death [Fatal]
